FAERS Safety Report 21812171 (Version 1)
Quarter: 2023Q1

REPORT INFORMATION
  Report Type: Spontaneous
  Country: US (occurrence: None)
  Receive Date: 20230103
  Receipt Date: 20230103
  Transmission Date: 20230417
  Serious: Yes (Other)
  Sender: FDA-Public Use
  Company Number: None

PATIENT
  Sex: Male

DRUGS (4)
  1. ENBREL [Suspect]
     Active Substance: ETANERCEPT
     Indication: Psoriatic arthropathy
     Dosage: 50 MG/ML SUBCUTANEOUS??INJECT 50 MG UNDER THE SKIN (SUBCUTANEOUS INJECTION) EVERY WEEK
     Route: 058
     Dates: start: 20160316
  2. AMLODIPINE TAB [Concomitant]
  3. METOPROL SUC TAB ER [Concomitant]
  4. ROSUVASTATIN [Concomitant]
     Active Substance: ROSUVASTATIN

REACTIONS (2)
  - Therapy interrupted [None]
  - Surgery [None]
